FAERS Safety Report 4815468-6 (Version None)
Quarter: 2005Q4

REPORT INFORMATION
  Report Type: 
  Country: None (occurrence: None)
  Receive Date: 20051031
  Receipt Date: 20051025
  Transmission Date: 20060501
  Serious: Yes (Hospitalization, Other)
  Sender: FDA-Public Use
  Company Number: GB-JNJFOC-20051005182

PATIENT
  Sex: Female
  Weight: 68 kg

DRUGS (6)
  1. REMICADE [Suspect]
     Route: 042
  2. METHOTREXATE [Concomitant]
     Route: 065
  3. FOLIC ACID [Concomitant]
     Route: 065
  4. ISONIAZID [Concomitant]
     Route: 065
  5. THYROXINE [Concomitant]
     Route: 065
  6. VIOXX [Concomitant]
     Route: 065

REACTIONS (1)
  - OVARIAN CYST [None]
